FAERS Safety Report 5866749-9 (Version None)
Quarter: 2008Q3

REPORT INFORMATION
  Report Type: 
  Country: None (occurrence: None)
  Receive Date: 20080828
  Receipt Date: 20080828
  Transmission Date: 20090109
  Serious: Yes (Other)
  Sender: FDA-Public Use
  Company Number: None

PATIENT
  Sex: Female
  Weight: 74.8435 kg

DRUGS (1)
  1. PROVIGIL [Suspect]
     Indication: SOMNOLENCE
     Dosage: 1 200 MG TAB PER DAY MORN-  1X DAY
     Dates: start: 20080729, end: 20080826

REACTIONS (6)
  - DERMATITIS CONTACT [None]
  - FATIGUE [None]
  - MALAISE [None]
  - PRURITUS [None]
  - RASH ERYTHEMATOUS [None]
  - SKIN ULCER [None]
